FAERS Safety Report 23975954 (Version 1)
Quarter: 2024Q2

REPORT INFORMATION
  Report Type: Spontaneous
  Country: CA (occurrence: CA)
  Receive Date: 20240614
  Receipt Date: 20240614
  Transmission Date: 20240716
  Serious: Yes (Other)
  Sender: FDA-Public Use
  Company Number: CA-BAXTER-2024BAX019651

PATIENT
  Age: 75 Year
  Sex: Male

DRUGS (1)
  1. CEFTRIAXONE [Suspect]
     Active Substance: CEFTRIAXONE\CEFTRIAXONE SODIUM
     Indication: Infection
     Dosage: 2.0 GRAM, 1 EVERY 1 DAYS, DOSAGE FORM: INJECTION
     Route: 042

REACTIONS (4)
  - Dyspnoea [Recovered/Resolved]
  - Restlessness [Recovered/Resolved]
  - Cold sweat [Recovered/Resolved]
  - Pruritus [Recovered/Resolved]
